FAERS Safety Report 8469702-4 (Version None)
Quarter: 2012Q2

REPORT INFORMATION
  Report Type: 
  Country: None (occurrence: None)
  Receive Date: 20120626
  Receipt Date: 20120620
  Transmission Date: 20120825
  Serious: No
  Sender: FDA-Public Use
  Company Number: US-PFIZER INC-2012149427

PATIENT
  Sex: Male
  Weight: 113.38 kg

DRUGS (1)
  1. LATANOPROST [Suspect]
     Indication: OPTIC NERVE DISORDER
     Dosage: UNK
     Dates: start: 20120101

REACTIONS (4)
  - EYE DISORDER [None]
  - VITAMIN D DECREASED [None]
  - FEELING ABNORMAL [None]
  - UNEVALUABLE EVENT [None]
